FAERS Safety Report 9698167 (Version 1)
Quarter: 2013Q4

REPORT INFORMATION
  Report Type: Spontaneous
  Country: IR (occurrence: None)
  Receive Date: 20131118
  Receipt Date: 20131118
  Transmission Date: 20140711
  Serious: Yes (Hospitalization, Other)
  Sender: FDA-Public Use
  Company Number: NSR_01313_2013

PATIENT
  Age: 11 Year
  Sex: Male

DRUGS (3)
  1. PROPRANOLOL [Suspect]
     Indication: TREMOR
     Dosage: (10 MG, [FREQUENCY UNKNOWN])
  2. SODIUM VALPROATE [Concomitant]
  3. RISPERIDONE [Concomitant]

REACTIONS (5)
  - Mania [None]
  - Euphoric mood [None]
  - Restlessness [None]
  - Insomnia [None]
  - Energy increased [None]
